FAERS Safety Report 5389512-4 (Version None)
Quarter: 2007Q3

REPORT INFORMATION
  Report Type: 
  Country: None (occurrence: None)
  Receive Date: 20070717
  Receipt Date: 20070709
  Transmission Date: 20080115
  Serious: Yes (Life-Threatening)
  Sender: FDA-Public Use
  Company Number: PHEH2007US06397

PATIENT
  Age: 59 Year
  Sex: Female

DRUGS (3)
  1. ZELNORM [Suspect]
     Dosage: 2 Q AM
     Route: 048
     Dates: start: 20050830, end: 20070426
  2. VESICUM [Concomitant]
     Dosage: 10 UNK, QD
     Route: 048
     Dates: start: 20060101, end: 20070705
  3. PRILOSEC [Concomitant]
     Dosage: 20 UNK, QD
     Route: 048
     Dates: start: 20060101, end: 20070705

REACTIONS (2)
  - CAROTID ARTERY OCCLUSION [None]
  - COORDINATION ABNORMAL [None]
